FAERS Safety Report 5728512-9 (Version None)
Quarter: 2008Q2

REPORT INFORMATION
  Report Type: 
  Country: None (occurrence: None)
  Receive Date: 20080506
  Receipt Date: 20080303
  Transmission Date: 20081010
  Serious: No
  Sender: FDA-Public Use
  Company Number: A0715021A

PATIENT
  Age: 6 Month
  Sex: Male

DRUGS (1)
  1. AMOXIL [Suspect]
     Indication: EAR INFECTION
     Route: 048

REACTIONS (5)
  - DYSPHAGIA [None]
  - INCORRECT DOSE ADMINISTERED [None]
  - PHARMACEUTICAL PRODUCT COMPLAINT [None]
  - REFUSAL OF TREATMENT BY PATIENT [None]
  - RETCHING [None]
